FAERS Safety Report 5175330-9 (Version None)
Quarter: 2006Q4

REPORT INFORMATION
  Report Type: 
  Country: None (occurrence: None)
  Receive Date: 20061215
  Receipt Date: 20061204
  Transmission Date: 20070319
  Serious: Yes (Life-Threatening)
  Sender: FDA-Public Use
  Company Number: 2006SE06504

PATIENT
  Age: 25969 Day
  Sex: Female
  Weight: 44 kg

DRUGS (6)
  1. BLOPRESS TABLETS 8 [Suspect]
     Indication: HYPERTENSION
     Route: 048
     Dates: start: 20000724, end: 20061112
  2. BLOPRESS TABLETS 8 [Suspect]
     Route: 048
     Dates: start: 20061113, end: 20061126
  3. DIGOXIN [Concomitant]
     Indication: ATRIAL FIBRILLATION
     Route: 048
     Dates: start: 20050806
  4. SUNRYTHM [Concomitant]
     Indication: ATRIAL FIBRILLATION
     Route: 048
     Dates: start: 20050806
  5. URSO [Concomitant]
     Indication: HEPATITIS C
     Route: 048
     Dates: start: 20050806
  6. MAINTATE [Concomitant]
     Indication: HYPERTENSION
     Route: 048
     Dates: start: 20050806

REACTIONS (2)
  - BLOOD PRESSURE DECREASED [None]
  - PALPITATIONS [None]
